FAERS Safety Report 5000878-7 (Version None)
Quarter: 2006Q2

REPORT INFORMATION
  Report Type: 
  Country: None (occurrence: None)
  Receive Date: 20060512
  Receipt Date: 20050429
  Transmission Date: 20061013
  Serious: No
  Sender: FDA-Public Use
  Company Number: US-GLAXOSMITHKLINE-A0556338A

PATIENT
  Age: 53 Year
  Sex: Female

DRUGS (7)
  1. RELAFEN [Suspect]
     Indication: DRUG USE FOR UNKNOWN INDICATION
     Dosage: 500MG TWICE PER DAY
     Route: 048
     Dates: start: 20030101
  2. ZYPREXA [Concomitant]
  3. WELLBUTRIN SR [Concomitant]
  4. TRIAMTERENE [Concomitant]
  5. NORTRIPTYLINE HCL [Concomitant]
  6. LEXAPRO [Concomitant]
  7. ZETIA [Concomitant]

REACTIONS (4)
  - ARTHRALGIA [None]
  - DRUG WITHDRAWAL SYNDROME [None]
  - JOINT STIFFNESS [None]
  - MYALGIA [None]
